FAERS Safety Report 4293876-2 (Version None)
Quarter: 2004Q1

REPORT INFORMATION
  Report Type: 
  Country: None (occurrence: None)
  Receive Date: 20040211
  Receipt Date: 20040128
  Transmission Date: 20041129
  Serious: Yes (Disabling)
  Sender: FDA-Public Use
  Company Number: 204279

PATIENT
  Age: 56 Year
  Sex: Female
  Weight: 84 kg

DRUGS (5)
  1. MABTHERA (RITUXIMAB)CONC FOR SOLUTION FOR INFUSION [Suspect]
     Indication: NON-HODGKIN'S LYMPHOMA
  2. CYCLOPHOSPHAMIDE [Suspect]
     Indication: NON-HODGKIN'S LYMPHOMA
     Dosage: 1600 MG, INTRAVENOUS
     Route: 042
     Dates: start: 20030813, end: 20031125
  3. DOXORUBICIN HCL [Suspect]
     Indication: NON-HODGKIN'S LYMPHOMA
     Dosage: 92 MG, INTRAVENOUS
     Route: 042
     Dates: start: 20030813, end: 20031120
  4. VINCRISTINE [Suspect]
     Indication: NON-HODGKIN'S LYMPHOMA
     Dosage: 1 MG, INTRAVENOUS
     Route: 042
     Dates: start: 20030813, end: 20031120
  5. PREDNISONE [Suspect]
     Indication: NON-HODGKIN'S LYMPHOMA
     Dosage: 100 MG, INTRAVENOUS
     Route: 042
     Dates: start: 20030813, end: 20031126

REACTIONS (1)
  - DEEP VEIN THROMBOSIS [None]
